FAERS Safety Report 4569393-9 (Version None)
Quarter: 2005Q1

REPORT INFORMATION
  Report Type: 
  Country: None (occurrence: None)
  Receive Date: 20050203
  Receipt Date: 20050126
  Transmission Date: 20050727
  Serious: Yes (Hospitalization)
  Sender: FDA-Public Use
  Company Number: FR-ROCHE-393677

PATIENT
  Age: 82 Year
  Sex: Male
  Weight: 63 kg

DRUGS (13)
  1. CLONAZEPAM [Suspect]
     Indication: PAIN
     Dosage: TAKEN AT NOON.
     Route: 048
     Dates: start: 20040910, end: 20040912
  2. CLONAZEPAM [Suspect]
     Dosage: 4 DROPS AT NOON AND 3 DROPS IN THE EVENING. DOSE INCREASED EVERY 2 TO 3 DAYS TO REACH A DOSE PROVID+
     Route: 048
     Dates: start: 20040913, end: 20040922
  3. RENITEC [Suspect]
     Indication: DRUG USE FOR UNKNOWN INDICATION
     Dosage: TAKEN IN MORNING AND AT NIGHT. TAKEN FROM AT LEAST 09 JUNE 2004.
     Route: 048
     Dates: start: 20040609, end: 20040922
  4. FLODIL LP [Concomitant]
     Indication: DRUG USE FOR UNKNOWN INDICATION
     Dosage: TAKEN AT NOON. ONGOING SINCE AT LEAST  09 JUNE 2004.
     Route: 048
     Dates: start: 20040609
  5. ALLOPURINOL [Concomitant]
     Indication: DRUG USE FOR UNKNOWN INDICATION
     Dosage: TAKEN AT NOON. ONGOING SINCE AT LEAST 09 JUNE 2004.
     Route: 048
     Dates: start: 20040609
  6. MEDIATENSYL [Concomitant]
     Indication: DRUG USE FOR UNKNOWN INDICATION
     Dosage: ONGOING SINCE AT LEAST 09 JUNE 2004.
     Route: 065
     Dates: start: 20040609
  7. ATENOLOL [Concomitant]
     Indication: DRUG USE FOR UNKNOWN INDICATION
     Dosage: TAKEN IN THE MORNING. ONGOING SINCE AT LEAST 09 JUNE 2004.
     Route: 065
     Dates: start: 20040609
  8. ACETAMINOPHEN [Concomitant]
     Dosage: TAKEN AT NOON AND IN THE EVENING.  ONGOING SINCE AT LEAST 09 JUNE 2004.
     Dates: start: 20040609
  9. RANIPLEX [Concomitant]
     Dosage: TAKEN AT NOON. ONGOING SINCE AT LEAST 09 JUNE 2004.
     Dates: start: 20040609
  10. LODALES [Concomitant]
     Dosage: TAKEN AT NOON. ONGOING SINCE AT LEST 09 JUNE 2004.
  11. TARDYFERON [Concomitant]
     Dosage: THREE TIMES PER WEEK. ONGOING SINCE AT LEAST 09 JUNE 2004.
     Dates: start: 20040609
  12. MOTILIUM [Concomitant]
     Dosage: TAKEN BEFORE EACH MEAL AS REQUIRED. ONGOING SINCE AT LEAST 09 JUNE 2004.
     Dates: start: 20040609
  13. EFFERALGAN [Concomitant]
     Dosage: TAKEN AS NEEDED. ONGOING SINCE AT LEAST 09 JUNE 2004.
     Dates: start: 20040609

REACTIONS (6)
  - ANGIOPATHY [None]
  - CARDIOMEGALY [None]
  - CONFUSIONAL STATE [None]
  - DISORIENTATION [None]
  - FALL [None]
  - HYPERKALAEMIA [None]
